FAERS Safety Report 12996654 (Version 4)
Quarter: 2017Q1

REPORT INFORMATION
  Report Type: Report from Study
  Country: US (occurrence: US)
  Receive Date: 20161204
  Receipt Date: 20170123
  Transmission Date: 20170428
  Serious: Yes (Hospitalization, Other)
  Sender: FDA-Public Use
  Company Number: US-BIOGEN-2016BI00324131

PATIENT
  Age: 55 Year
  Sex: Female

DRUGS (2)
  1. TECFIDERA [Suspect]
     Active Substance: DIMETHYL FUMARATE
     Route: 065
  2. TECFIDERA [Suspect]
     Active Substance: DIMETHYL FUMARATE
     Indication: MULTIPLE SCLEROSIS
     Route: 065
     Dates: start: 20160623, end: 20161022

REACTIONS (5)
  - Traumatic intracranial haemorrhage [Unknown]
  - Bipolar disorder [Unknown]
  - Fall [Recovered/Resolved]
  - Amnesia [Unknown]
  - Suicide attempt [Unknown]

NARRATIVE: CASE EVENT DATE: 20161022
